FAERS Safety Report 9443465 (Version 2)
Quarter: 2013Q3

REPORT INFORMATION
  Report Type: Spontaneous
  Country: TW (occurrence: TW)
  Receive Date: 20130806
  Receipt Date: 20130913
  Transmission Date: 20140515
  Serious: Yes (Other)
  Sender: FDA-Public Use
  Company Number: TW-JNJFOC-20130802192

PATIENT
  Age: 55 Year
  Sex: Female

DRUGS (1)
  1. FINIBAX [Suspect]
     Indication: INFECTION
     Dosage: 1.5 G/D (500 MG ONCE IN 8 HOURS).
     Route: 042
     Dates: start: 20130715, end: 20130728

REACTIONS (1)
  - Thrombocytosis [Recovered/Resolved]
